FAERS Safety Report 10143336 (Version 3)
Quarter: 2014Q2

REPORT INFORMATION
  Report Type: Spontaneous
  Country: JP (occurrence: JP)
  Receive Date: 20140430
  Receipt Date: 20140629
  Transmission Date: 20141212
  Serious: Yes (Other)
  Sender: FDA-Public Use
  Company Number: PHHY2014JP035370

PATIENT
  Age: 80 Year
  Sex: Female

DRUGS (2)
  1. NEORAL [Suspect]
     Indication: MYELODYSPLASTIC SYNDROME
     Dosage: 60 MG, DAILY
     Route: 048
     Dates: start: 201210
  2. NEORAL [Suspect]
     Indication: OFF LABEL USE

REACTIONS (1)
  - Spinal column stenosis [Unknown]
